FAERS Safety Report 7928578-1 (Version None)
Quarter: 2011Q4

REPORT INFORMATION
  Report Type: 
  Country: None (occurrence: None)
  Receive Date: 20111118
  Receipt Date: 20111104
  Transmission Date: 20120403
  Serious: Yes (Other)
  Sender: FDA-Public Use
  Company Number: JP-JNJFOC-20110103634

PATIENT
  Sex: Female
  Weight: 45 kg

DRUGS (7)
  1. GOLIMUMAB [Suspect]
     Indication: RHEUMATOID ARTHRITIS
     Route: 058
     Dates: start: 20081104, end: 20100514
  2. YAKUBAN [Concomitant]
     Indication: RHEUMATOID ARTHRITIS
     Route: 003
     Dates: start: 20100417
  3. YAKUBAN [Concomitant]
     Route: 003
     Dates: start: 20081017, end: 20100416
  4. LENDORMIN D [Concomitant]
     Indication: INSOMNIA
     Route: 048
     Dates: start: 20001201
  5. TEPRENONE [Concomitant]
     Indication: PROPHYLAXIS
     Route: 048
     Dates: end: 20100416
  6. RHEUMATREX [Suspect]
     Indication: RHEUMATOID ARTHRITIS
     Route: 048
     Dates: start: 20030617
  7. MELOXICAM [Concomitant]
     Indication: RHEUMATOID ARTHRITIS
     Route: 048
     Dates: start: 20060816, end: 20100416

REACTIONS (1)
  - EXTRANODAL MARGINAL ZONE B-CELL LYMPHOMA (MALT TYPE) [None]
